FAERS Safety Report 5441795-8 (Version None)
Quarter: 2007Q3

REPORT INFORMATION
  Report Type: 
  Country: None (occurrence: None)
  Receive Date: 20070830
  Receipt Date: 20070830
  Transmission Date: 20080115
  Serious: Yes (Hospitalization)
  Sender: FDA-Public Use
  Company Number: None

PATIENT
  Age: 58 Year
  Sex: Male

DRUGS (1)
  1. FUROSEMIDE [Suspect]
     Indication: CARDIAC FAILURE CONGESTIVE
     Dosage: 20MG  BID  PO
     Route: 048
     Dates: start: 20070103, end: 20070502

REACTIONS (3)
  - ANGINA PECTORIS [None]
  - HYPOTENSION [None]
  - RENAL FAILURE ACUTE [None]
